FAERS Safety Report 22240613 (Version 2)
Quarter: 2023Q2

REPORT INFORMATION
  Report Type: Report from Study
  Country: GB (occurrence: GB)
  Receive Date: 20230421
  Receipt Date: 20230426
  Transmission Date: 20230722
  Serious: Yes (Death, Hospitalization)
  Sender: FDA-Public Use
  Company Number: GB-MYLANLABS-2023M1042938

PATIENT
  Age: 5 Decade
  Sex: Male

DRUGS (8)
  1. CLOZAPINE [Suspect]
     Active Substance: CLOZAPINE
     Indication: Product used for unknown indication
     Dosage: 300 MILLIGRAM, QD
     Route: 065
  2. AMISULPRIDE [Suspect]
     Active Substance: AMISULPRIDE
     Indication: Product used for unknown indication
     Dosage: 400 MILLIGRAM, QD
     Route: 065
  3. EPINEPHRINE [Suspect]
     Active Substance: EPINEPHRINE
     Indication: Symptomatic treatment
     Dosage: UNK
     Route: 065
  4. EPINEPHRINE [Suspect]
     Active Substance: EPINEPHRINE
     Indication: Gastrointestinal hypomotility
  5. NOREPINEPHRINE [Suspect]
     Active Substance: NOREPINEPHRINE
     Indication: Symptomatic treatment
     Dosage: UNK
     Route: 042
  6. NOREPINEPHRINE [Suspect]
     Active Substance: NOREPINEPHRINE
     Indication: Gastrointestinal hypomotility
  7. VASOPRESSIN [Suspect]
     Active Substance: VASOPRESSIN
     Indication: Symptomatic treatment
     Dosage: UNK
     Route: 065
  8. VASOPRESSIN [Suspect]
     Active Substance: VASOPRESSIN
     Indication: Gastrointestinal hypomotility

REACTIONS (7)
  - Faecal vomiting [Fatal]
  - Hypotension [Fatal]
  - Heart rate increased [Fatal]
  - Metabolic acidosis [Fatal]
  - Gastrointestinal hypomotility [Fatal]
  - Constipation [Fatal]
  - Drug ineffective [Fatal]
